FAERS Safety Report 11413623 (Version 2)
Quarter: 2015Q3

REPORT INFORMATION
  Report Type: Spontaneous
  Country: US (occurrence: US)
  Receive Date: 20150824
  Receipt Date: 20150825
  Transmission Date: 20151125
  Serious: No
  Sender: FDA-Public Use
  Company Number: US-PFIZER INC-2015270235

PATIENT
  Age: 72 Year
  Sex: Female

DRUGS (1)
  1. PREMARIN [Suspect]
     Active Substance: ESTROGENS, CONJUGATED
     Dosage: UNK

REACTIONS (6)
  - Dysuria [Unknown]
  - Headache [Unknown]
  - Hypersensitivity [Unknown]
  - Piloerection [Unknown]
  - Vulvovaginal burning sensation [Unknown]
  - Pollakiuria [Unknown]
